FAERS Safety Report 5705010-X (Version None)
Quarter: 2008Q2

REPORT INFORMATION
  Report Type: 
  Country: None (occurrence: None)
  Receive Date: 20080414
  Receipt Date: 20080403
  Transmission Date: 20081010
  Serious: Yes (Disabling)
  Sender: FDA-Public Use
  Company Number: GB-PFIZER INC-2008029892

PATIENT
  Age: 66 Year
  Sex: Male
  Weight: 74 kg

DRUGS (1)
  1. SULFASALAZINE [Suspect]
     Indication: ARTHRITIS
     Route: 048
     Dates: start: 20071228, end: 20080225

REACTIONS (1)
  - CRYPTOGENIC ORGANISING PNEUMONIA [None]
